FAERS Safety Report 11621777 (Version 1)
Quarter: 2015Q4

REPORT INFORMATION
  Report Type: Spontaneous
  Country: US (occurrence: US)
  Receive Date: 20151013
  Receipt Date: 20151013
  Transmission Date: 20160304
  Serious: No
  Sender: FDA-Public Use
  Company Number: US-AMGEN-USASP2015106450

PATIENT
  Sex: Female

DRUGS (3)
  1. VITAMIN D                          /00107901/ [Concomitant]
     Active Substance: ERGOCALCIFEROL
     Dosage: UNK
  2. NIACIN. [Concomitant]
     Active Substance: NIACIN
     Dosage: UNK
  3. ENBREL [Suspect]
     Active Substance: ETANERCEPT
     Indication: RHEUMATOID ARTHRITIS
     Dosage: UNK
     Route: 065

REACTIONS (10)
  - Rash erythematous [Unknown]
  - Sunburn [Unknown]
  - Arthropod bite [Unknown]
  - Hypertension [Unknown]
  - Rash pruritic [Unknown]
  - Wound [Unknown]
  - Skin ulcer [Unknown]
  - Pruritus [Unknown]
  - No therapeutic response [Unknown]
  - Rash [Unknown]
